FAERS Safety Report 8538326-2 (Version None)
Quarter: 2012Q3

REPORT INFORMATION
  Report Type: 
  Country: None (occurrence: None)
  Receive Date: 20120726
  Receipt Date: 20120719
  Transmission Date: 20120928
  Serious: Yes (Other)
  Sender: FDA-Public Use
  Company Number: JP-009507513-2012SP027866

PATIENT

DRUGS (10)
  1. TELAPREVIR [Suspect]
     Indication: HEPATITIS C
     Dosage: 750 MG, TID
     Route: 048
     Dates: start: 20120419, end: 20120514
  2. PEGINTERFERON ALFA-2B [Suspect]
     Dosage: UNK
     Route: 058
     Dates: start: 20120517
  3. MAGMITT [Concomitant]
     Indication: CONSTIPATION
     Dosage: UPDATE (28MAY2012):FORMULATION: POR
     Route: 048
     Dates: start: 20120424
  4. REBETOL [Suspect]
     Dosage: UNK
     Route: 048
     Dates: start: 20120517
  5. ZOLPIDEM [Concomitant]
     Indication: PRODUCT USED FOR UNKNOWN INDICATION
     Dosage: UPDATE (28MAY2012) DOSE: 10 MG/DAY, AS NEEDED
     Route: 048
     Dates: start: 20120424, end: 20120510
  6. REBETOL [Suspect]
     Indication: HEPATITIS C
     Dosage: 800 MG, QD
     Route: 048
     Dates: start: 20120419, end: 20120429
  7. AMOBAN [Concomitant]
     Indication: INSOMNIA
     Dosage: UPDATE (28MAY2012):DOSE: 5 MG/DAY, AS NEEDED
     Route: 048
     Dates: start: 20120423
  8. GASMOTIN [Concomitant]
     Indication: CONSTIPATION
     Dosage: UPDATE (28MAY2012):FORMULATION: POR
     Route: 048
     Dates: start: 20120430
  9. PEGINTERFERON ALFA-2B [Suspect]
     Indication: HEPATITIS C
     Dosage: 1.5 ?G/KG, QW
     Route: 058
     Dates: start: 20120419, end: 20120514
  10. REBETOL [Suspect]
     Dosage: 600 MG, QD
     Route: 048
     Dates: start: 20120430, end: 20120514

REACTIONS (2)
  - BLISTER [None]
  - ERYTHEMA [None]
